FAERS Safety Report 7730501-X (Version None)
Quarter: 2011Q3

REPORT INFORMATION
  Report Type: 
  Country: None (occurrence: None)
  Receive Date: 20110821
  Receipt Date: 20110808
  Transmission Date: 20111222
  Serious: Yes (Death)
  Sender: FDA-Public Use
  Company Number: 2011180711

PATIENT
  Age: 27 Year
  Sex: Male

DRUGS (5)
  1. GEMTUZUMAB OZOGAMICIN (GEMTUZUMAB OZOGAMICIN) [Suspect]
     Indication: ACUTE LEUKAEMIA
     Dosage: 12 MG. 1X/DAY, INTRAVENOUS
     Route: 042
     Dates: start: 20080422, end: 20080422
  2. AMSALYO (AMSACRINE) [Suspect]
     Dosage: 220 MG, 1X/DAY
     Dates: start: 20080620, end: 20080622
  3. CERUBIDINE [Suspect]
     Indication: ACUTE LEUKAEMIA
     Dosage: 130 MG, 1X/DAY, INTRAVENOUS
     Route: 042
     Dates: start: 20080419, end: 20080421
  4. CYTARABINE [Suspect]
     Indication: ACUTE MYELOID LEUKAEMIA
     Dosage: 430 MG,6.6 G 1X/DAY, INTRAVENOUS
     Route: 042
     Dates: start: 20080620, end: 20080623
  5. CYTARABINE [Suspect]
     Indication: ACUTE MYELOID LEUKAEMIA
     Dosage: 430 MG,6.6 G 1X/DAY, INTRAVENOUS
     Route: 042
     Dates: start: 20080419, end: 20080425

REACTIONS (3)
  - BONE MARROW FAILURE [None]
  - NEOPLASM PROGRESSION [None]
  - ACUTE MYELOID LEUKAEMIA [None]
